FAERS Safety Report 6858992-7 (Version None)
Quarter: 2010Q3

REPORT INFORMATION
  Report Type: 
  Country: None (occurrence: None)
  Receive Date: 20100719
  Receipt Date: 20080221
  Transmission Date: 20110219
  Serious: No
  Sender: FDA-Public Use
  Company Number: US-PFIZER INC-2008016759

PATIENT
  Sex: Female
  Weight: 100 kg

DRUGS (4)
  1. CHANTIX [Suspect]
     Indication: SMOKING CESSATION THERAPY
     Dates: start: 20080123, end: 20080215
  2. OTHER HYPNOTICS AND SEDATIVES [Concomitant]
  3. VARIOUS ALIMENTARY TRACT + METABOLISM PRODUCT [Concomitant]
  4. ANTIDEPRESSANTS [Concomitant]

REACTIONS (3)
  - ABNORMAL DREAMS [None]
  - DRY MOUTH [None]
  - FLATULENCE [None]
